FAERS Safety Report 7897621-0 (Version None)
Quarter: 2011Q4

REPORT INFORMATION
  Report Type: 
  Country: None (occurrence: None)
  Receive Date: 20111107
  Receipt Date: 20111101
  Transmission Date: 20120403
  Serious: Yes (Other)
  Sender: FDA-Public Use
  Company Number: US-PFIZER INC-2011268161

PATIENT
  Sex: Female
  Weight: 68.027 kg

DRUGS (6)
  1. MULTI-VITAMINS [Concomitant]
     Route: 048
  2. CORTEF [Concomitant]
     Dosage: 10 MG, UNK
     Route: 048
  3. PROGESTERONE [Concomitant]
     Dosage: UNK
     Route: 061
  4. ESTROGEN NOS [Concomitant]
     Dosage: UNK
     Route: 061
  5. GENOTROPIN [Suspect]
     Dosage: 0.4 MG, EVERY DAY
     Route: 058
  6. THYROID [Concomitant]
     Dosage: 1 GR
     Route: 048

REACTIONS (2)
  - BONE NEOPLASM [None]
  - LOWER LIMB FRACTURE [None]
